FAERS Safety Report 12088674 (Version 4)
Quarter: 2016Q1

REPORT INFORMATION
  Report Type: Spontaneous
  Country: FR (occurrence: FR)
  Receive Date: 20160218
  Receipt Date: 20160324
  Transmission Date: 20160526
  Serious: Yes (Life-Threatening, Hospitalization)
  Sender: FDA-Public Use
  Company Number: FR-ROCHE-1712000

PATIENT
  Age: 81 Year
  Sex: Male
  Weight: 66 kg

DRUGS (6)
  1. GAZYVARO [Suspect]
     Active Substance: OBINUTUZUMAB
     Indication: CHRONIC LYMPHOCYTIC LEUKAEMIA
     Dosage: IT WAS REPORTED THAT OBINUTUZUMAB REINTRODUCTION WAS PLANNED AS 3 INJECTIONS/WEEK THEN 1 INJECTION/
     Route: 041
     Dates: start: 20160215, end: 20160215
  2. CELOCURINE [Concomitant]
     Active Substance: SUCCINYLCHOLINE CHLORIDE
     Dosage: FOR SEDATION
     Route: 065
  3. OXYGEN. [Concomitant]
     Active Substance: OXYGEN
     Dosage: 5 L/MIN
     Route: 065
  4. CHLORAMINOPHENE [Concomitant]
     Active Substance: CHLORAMBUCIL
     Route: 048
     Dates: start: 201602
  5. ETOMIDATE. [Concomitant]
     Active Substance: ETOMIDATE
     Dosage: FOR SEDATION
     Route: 065
  6. HYPNOVEL (FRANCE) [Concomitant]
     Active Substance: MIDAZOLAM\MIDAZOLAM HYDROCHLORIDE
     Dosage: FOR SEDATION
     Route: 065

REACTIONS (3)
  - Anaphylactic shock [Not Recovered/Not Resolved]
  - Acute pulmonary oedema [Recovered/Resolved]
  - Infusion related reaction [Recovered/Resolved]

NARRATIVE: CASE EVENT DATE: 20160215
